FAERS Safety Report 9110135 (Version 2)
Quarter: 2013Q4

REPORT INFORMATION
  Report Type: Spontaneous
  Country: US (occurrence: US)
  Receive Date: 20130222
  Receipt Date: 20131113
  Transmission Date: 20140711
  Serious: Yes (Hospitalization)
  Sender: FDA-Public Use
  Company Number: US-BAYER-2013-021006

PATIENT
  Age: 41 Year
  Sex: Female

DRUGS (15)
  1. YAZ [Suspect]
  2. GIANVI [Suspect]
  3. YASMIN [Suspect]
  4. PROVENTIL [Concomitant]
  5. XOPENEX [Concomitant]
  6. ZYRTEC [Concomitant]
  7. ADVAIR [Concomitant]
  8. SINGULAIR [Concomitant]
  9. PRILOSEC [Concomitant]
  10. IMITREX [Concomitant]
  11. ZONISAMIDE [Concomitant]
  12. IBUPROFEN [Concomitant]
  13. PHENERGAN [Concomitant]
  14. ZOFRAN [Concomitant]
  15. REGLAN [Concomitant]

REACTIONS (1)
  - Cerebrovascular accident [None]
